FAERS Safety Report 14900071 (Version 2)
Quarter: 2018Q4

REPORT INFORMATION
  Report Type: Spontaneous
  Country: FR (occurrence: FR)
  Receive Date: 20180516
  Receipt Date: 20181026
  Transmission Date: 20190204
  Serious: Yes (Other)
  Sender: FDA-Public Use
  Company Number: FR-MERCK KGAA-2047877

PATIENT
  Age: 55 Year
  Sex: Female

DRUGS (1)
  1. NOVOTHYROX [Suspect]
     Active Substance: LEVOTHYROXINE SODIUM
     Indication: HYPOTHYROIDISM

REACTIONS (24)
  - Arrhythmia [Recovering/Resolving]
  - Serum ferritin decreased [None]
  - Thyroxine free decreased [None]
  - Nausea [Recovering/Resolving]
  - Feeling of body temperature change [Recovering/Resolving]
  - Loss of personal independence in daily activities [None]
  - Asthenia [Recovering/Resolving]
  - Myalgia [Recovering/Resolving]
  - Weight abnormal [Recovering/Resolving]
  - Blood iron decreased [None]
  - Tri-iodothyronine free increased [None]
  - Decreased appetite [None]
  - Arthralgia [Recovering/Resolving]
  - Anti-thyroid antibody [None]
  - Chills [None]
  - Fatigue [None]
  - Gastrointestinal disorder [Recovering/Resolving]
  - Vomiting [None]
  - Psychiatric symptom [None]
  - Thyroglobulin increased [None]
  - Blood thyroid stimulating hormone increased [None]
  - Pain [Recovering/Resolving]
  - Gastrooesophageal reflux disease [Recovering/Resolving]
  - Insomnia [Recovering/Resolving]

NARRATIVE: CASE EVENT DATE: 20170506
